FAERS Safety Report 23067506 (Version 1)
Quarter: 2023Q4

REPORT INFORMATION
  Report Type: Spontaneous
  Country: US (occurrence: US)
  Receive Date: 20231016
  Receipt Date: 20231016
  Transmission Date: 20240110
  Serious: Yes (Hospitalization, Other)
  Sender: FDA-Public Use
  Company Number: US-NOVOPROD-1125918

PATIENT
  Sex: Male

DRUGS (1)
  1. TRESIBA [Suspect]
     Active Substance: INSULIN DEGLUDEC
     Indication: Type 2 diabetes mellitus
     Dosage: 10 UNITS SLIDING SCALE ADDITIONAL 2  UNITS ADDED IN ACCORDANCE WITH SUGAR LEVELS.
     Route: 058

REACTIONS (2)
  - Hospitalisation [Unknown]
  - Pneumonia [Unknown]
